FAERS Safety Report 4523014-X (Version None)
Quarter: 2004Q4

REPORT INFORMATION
  Report Type: 
  Country: None (occurrence: None)
  Receive Date: 20041208
  Receipt Date: 20041126
  Transmission Date: 20050328
  Serious: Yes (Death)
  Sender: FDA-Public Use
  Company Number: 2004098782

PATIENT

DRUGS (1)
  1. BEGALIN-P (SULBACTAM, AMPICILLIN) [Suspect]
     Indication: ILL-DEFINED DISORDER
     Dosage: INTRAVENOUS
     Route: 042
     Dates: start: 20041101, end: 20041101

REACTIONS (1)
  - ANAPHYLACTIC SHOCK [None]
